FAERS Safety Report 7079534-X (Version None)
Quarter: 2010Q4

REPORT INFORMATION
  Report Type: 
  Country: None (occurrence: None)
  Receive Date: 20101102
  Receipt Date: 20101025
  Transmission Date: 20110411
  Serious: Yes (Disabling, Other)
  Sender: FDA-Public Use
  Company Number: US-SANOFI-AVENTIS-2010SA050828

PATIENT
  Age: 85 Year
  Sex: Female

DRUGS (2)
  1. OPTICLICK [Suspect]
     Dates: start: 20050101
  2. LANTUS [Suspect]
     Dosage: DOSE:30 UNIT(S)
     Route: 058
     Dates: start: 20050101

REACTIONS (3)
  - FALL [None]
  - PARALYSIS [None]
  - SPINAL COMPRESSION FRACTURE [None]
